FAERS Safety Report 6441636-6 (Version None)
Quarter: 2009Q4

REPORT INFORMATION
  Report Type: 
  Country: None (occurrence: None)
  Receive Date: 20091113
  Receipt Date: 20091113
  Transmission Date: 20100525
  Serious: Yes (Other)
  Sender: FDA-Public Use
  Company Number: None

PATIENT
  Age: 47 Year
  Sex: Male
  Weight: 81.6475 kg

DRUGS (2)
  1. EMBEDA [Suspect]
     Indication: GASTROOESOPHAGEAL REFLUX DISEASE
     Dates: start: 20091028, end: 20091109
  2. EMBEDA [Suspect]
     Indication: INADEQUATE ANALGESIA
     Dates: start: 20091028, end: 20091109

REACTIONS (1)
  - GASTROOESOPHAGEAL REFLUX DISEASE [None]
